FAERS Safety Report 23074793 (Version 1)
Quarter: 2023Q4

REPORT INFORMATION
  Report Type: Report from Study
  Country: CA (occurrence: CA)
  Receive Date: 20231017
  Receipt Date: 20231017
  Transmission Date: 20240110
  Serious: Yes (Hospitalization, Other)
  Sender: FDA-Public Use
  Company Number: CA-BRISTOL-MYERS SQUIBB COMPANY-2023-099250

PATIENT
  Age: 59 Year
  Sex: Female
  Weight: 51 kg

DRUGS (5)
  1. ABRAXANE [Suspect]
     Active Substance: PACLITAXEL
     Indication: Pancreatic carcinoma metastatic
     Route: 042
     Dates: start: 20230630
  2. ABRAXANE [Suspect]
     Active Substance: PACLITAXEL
  3. ABRAXANE [Suspect]
     Active Substance: PACLITAXEL
     Dosage: Q 3 WEEKS, Q. CYCLE 2, TREATMENT 2 (DAY 15) DOSE: 150 MG IV
     Route: 042
     Dates: start: 20230714
  4. ABRAXANE [Suspect]
     Active Substance: PACLITAXEL
     Route: 042
     Dates: start: 20230922
  5. ABRAXANE [Suspect]
     Active Substance: PACLITAXEL
     Route: 042
     Dates: start: 20230630

REACTIONS (11)
  - Thrombocytopenia [Unknown]
  - Off label use [Unknown]
  - Neutrophil count decreased [Unknown]
  - Weight decreased [Unknown]
  - Pyrexia [Recovered/Resolved]
  - Infection [Recovered/Resolved]
  - Blood pressure systolic increased [Unknown]
  - Neutrophil count abnormal [Unknown]
  - Neutropenia [Unknown]
  - Product dose omission issue [Unknown]
  - Blood pressure diastolic increased [Unknown]

NARRATIVE: CASE EVENT DATE: 20230101
